FAERS Safety Report 22353159 (Version 2)
Quarter: 2025Q4

REPORT INFORMATION
  Report Type: Spontaneous
  Country: CA (occurrence: CA)
  Receive Date: 20230523
  Receipt Date: 20251226
  Transmission Date: 20260119
  Serious: Yes (Life-Threatening, Hospitalization, Disabling, Congenital Anomaly, Other)
  Sender: BRISTOL-MYERS SQUIBB COMPANY
  Company Number: CA-BRISTOL-MYERS SQUIBB COMPANY-2023-071893

PATIENT
  Age: 43 Year
  Sex: Female
  Weight: 68 kg

DRUGS (427)
  1. ORENCIA [Suspect]
     Active Substance: ABATACEPT
     Indication: Rheumatoid arthritis
     Dosage: THERAPY DURATION: 365
     Route: 058
  2. ORENCIA [Suspect]
     Active Substance: ABATACEPT
     Route: 058
  3. ORENCIA [Suspect]
     Active Substance: ABATACEPT
     Indication: Rheumatoid arthritis
     Route: 042
  4. ORENCIA [Suspect]
     Active Substance: ABATACEPT
     Route: 042
  5. ORENCIA [Suspect]
     Active Substance: ABATACEPT
     Dosage: THERAPY DURATION: 365
     Route: 042
  6. ORENCIA [Suspect]
     Active Substance: ABATACEPT
     Indication: Rheumatoid arthritis
  7. ORENCIA [Suspect]
     Active Substance: ABATACEPT
  8. ORENCIA [Suspect]
     Active Substance: ABATACEPT
  9. ORENCIA [Suspect]
     Active Substance: ABATACEPT
  10. ACETAMINOPHEN [Concomitant]
     Active Substance: ACETAMINOPHEN
     Indication: Rheumatoid arthritis
  11. ACETAMINOPHEN [Concomitant]
     Active Substance: ACETAMINOPHEN
     Route: 048
  12. ACETAMINOPHEN [Concomitant]
     Active Substance: ACETAMINOPHEN
  13. ACETAMINOPHEN [Concomitant]
     Active Substance: ACETAMINOPHEN
  14. ACETAMINOPHEN [Concomitant]
     Active Substance: ACETAMINOPHEN
  15. ACETAMINOPHEN [Concomitant]
     Active Substance: ACETAMINOPHEN
  16. ACETAMINOPHEN AND CODEINE [Concomitant]
     Active Substance: ACETAMINOPHEN\CODEINE PHOSPHATE
     Indication: Product used for unknown indication
  17. ACTEMRA [Concomitant]
     Active Substance: TOCILIZUMAB
     Indication: Rheumatoid arthritis
     Route: 042
  18. ACTEMRA [Concomitant]
     Active Substance: TOCILIZUMAB
     Route: 042
  19. ACTEMRA [Concomitant]
     Active Substance: TOCILIZUMAB
     Route: 042
  20. ACTEMRA [Concomitant]
     Active Substance: TOCILIZUMAB
     Route: 042
  21. ACTEMRA [Concomitant]
     Active Substance: TOCILIZUMAB
     Route: 042
  22. ACTEMRA [Concomitant]
     Active Substance: TOCILIZUMAB
     Route: 042
  23. ACTEMRA [Concomitant]
     Active Substance: TOCILIZUMAB
     Route: 058
  24. ACTEMRA [Concomitant]
     Active Substance: TOCILIZUMAB
  25. ACTEMRA [Concomitant]
     Active Substance: TOCILIZUMAB
  26. ALENDRONIC ACID [Concomitant]
     Active Substance: ALENDRONIC ACID
     Indication: Rheumatoid arthritis
  27. PREDNISONE [Concomitant]
     Active Substance: PREDNISONE
     Indication: Rheumatoid arthritis
  28. PREDNISONE [Concomitant]
     Active Substance: PREDNISONE
     Indication: Condition aggravated
  29. PREDNISONE [Concomitant]
     Active Substance: PREDNISONE
     Route: 048
  30. PREDNISONE [Concomitant]
     Active Substance: PREDNISONE
  31. PREDNISONE [Concomitant]
     Active Substance: PREDNISONE
  32. PREDNISONE [Concomitant]
     Active Substance: PREDNISONE
  33. PREDNISONE [Concomitant]
     Active Substance: PREDNISONE
  34. PREDNISONE [Concomitant]
     Active Substance: PREDNISONE
     Route: 048
  35. PREDNISONE [Concomitant]
     Active Substance: PREDNISONE
  36. PREDNISONE [Concomitant]
     Active Substance: PREDNISONE
  37. APREMILAST [Concomitant]
     Active Substance: APREMILAST
     Indication: Product used for unknown indication
     Dosage: 2 EVERY 1 DAY
  38. APREMILAST [Concomitant]
     Active Substance: APREMILAST
  39. ARAVA [Concomitant]
     Active Substance: LEFLUNOMIDE
     Indication: Rheumatoid arthritis
     Route: 048
  40. ARAVA [Concomitant]
     Active Substance: LEFLUNOMIDE
     Route: 048
  41. ARAVA [Concomitant]
     Active Substance: LEFLUNOMIDE
     Route: 048
  42. ARAVA [Concomitant]
     Active Substance: LEFLUNOMIDE
     Route: 048
  43. ARAVA [Concomitant]
     Active Substance: LEFLUNOMIDE
  44. ARAVA [Concomitant]
     Active Substance: LEFLUNOMIDE
     Route: 048
  45. CAFFEINE CITRATE [Concomitant]
     Active Substance: CAFFEINE CITRATE
     Indication: Product used for unknown indication
  46. CALCIUM CARBONATE [Concomitant]
     Active Substance: CALCIUM CARBONATE
     Indication: Product used for unknown indication
  47. CALCIUM GLUBIONATE [Concomitant]
     Active Substance: CALCIUM GLUBIONATE
     Indication: Product used for unknown indication
  48. CALCIUM GLUCONATE [Concomitant]
     Active Substance: CALCIUM GLUCONATE
     Indication: Product used for unknown indication
  49. CELEBREX [Concomitant]
     Active Substance: CELECOXIB
     Indication: Product used for unknown indication
     Dosage: 1 EVERY 1 DAYS
     Route: 048
  50. CELEBREX [Concomitant]
     Active Substance: CELECOXIB
     Dosage: 1 EVERY 1 DAYS
  51. CERTOLIZUMAB PEGOL [Concomitant]
     Active Substance: CERTOLIZUMAB PEGOL
     Indication: Product used for unknown indication
  52. CETIRIZINE HYDROCHLORIDE [Concomitant]
     Active Substance: CETIRIZINE HYDROCHLORIDE
     Indication: Rheumatoid arthritis
  53. CETIRIZINE HYDROCHLORIDE [Concomitant]
     Active Substance: CETIRIZINE HYDROCHLORIDE
     Dosage: 1 EVERY 1 DAYS
     Route: 048
  54. CETIRIZINE HYDROCHLORIDE [Concomitant]
     Active Substance: CETIRIZINE HYDROCHLORIDE
     Dosage: 1 EVERY 1 DAYS
  55. CETIRIZINE HYDROCHLORIDE [Concomitant]
     Active Substance: CETIRIZINE HYDROCHLORIDE
  56. CETRAXATE [Concomitant]
     Active Substance: CETRAXATE
     Indication: Rheumatoid arthritis
     Route: 048
  57. CETRAXATE [Concomitant]
     Active Substance: CETRAXATE
     Dosage: 1 EVERY 1 DAYS
     Route: 048
  58. CETRAXATE [Concomitant]
     Active Substance: CETRAXATE
     Route: 048
  59. CETRAXATE [Concomitant]
     Active Substance: CETRAXATE
  60. CHOLECALCIFEROL [Concomitant]
     Active Substance: CHOLECALCIFEROL
     Indication: Product used for unknown indication
  61. CORTISONE [Concomitant]
     Active Substance: CORTISONE
     Indication: Rheumatoid arthritis
     Route: 058
  62. CORTISONE ACETATE [Concomitant]
     Active Substance: CORTISONE ACETATE
     Indication: Rheumatoid arthritis
  63. CORTISONE ACETATE [Concomitant]
     Active Substance: CORTISONE ACETATE
     Route: 048
  64. CORTISONE ACETATE [Concomitant]
     Active Substance: CORTISONE ACETATE
     Route: 048
  65. CORTISONE ACETATE [Concomitant]
     Active Substance: CORTISONE ACETATE
  66. COSENTYX [Concomitant]
     Active Substance: SECUKINUMAB
     Indication: Psoriatic arthropathy
  67. COSENTYX [Concomitant]
     Active Substance: SECUKINUMAB
     Indication: Rheumatoid arthritis
     Route: 042
  68. DESOXIMETASONE [Concomitant]
     Active Substance: DESOXIMETASONE
     Indication: Rheumatoid arthritis
     Route: 048
  69. DESOXIMETASONE [Concomitant]
     Active Substance: DESOXIMETASONE
     Route: 048
  70. DESOXIMETASONE [Concomitant]
     Active Substance: DESOXIMETASONE
  71. DESOXIMETASONE [Concomitant]
     Active Substance: DESOXIMETASONE
     Route: 058
  72. DESOXIMETASONE [Concomitant]
     Active Substance: DESOXIMETASONE
  73. DESOXIMETASONE [Concomitant]
     Active Substance: DESOXIMETASONE
  74. DESOXIMETASONE [Concomitant]
     Active Substance: DESOXIMETASONE
     Route: 048
  75. DESOXIMETASONE [Concomitant]
     Active Substance: DESOXIMETASONE
     Route: 048
  76. DESOXIMETASONE [Concomitant]
     Active Substance: DESOXIMETASONE
  77. DESOXIMETASONE [Concomitant]
     Active Substance: DESOXIMETASONE
     Route: 048
  78. DESOXIMETASONE [Concomitant]
     Active Substance: DESOXIMETASONE
     Route: 048
  79. DESOXIMETASONE [Concomitant]
     Active Substance: DESOXIMETASONE
  80. DESOXIMETASONE [Concomitant]
     Active Substance: DESOXIMETASONE
  81. DICLOFENAC DIETHYLAMINE [Concomitant]
     Active Substance: DICLOFENAC DIETHYLAMINE
     Indication: Product used for unknown indication
  82. DICLOFENAC POTASSIUM [Concomitant]
     Active Substance: DICLOFENAC POTASSIUM
     Indication: Product used for unknown indication
  83. DICLOFENAC SODIUM [Concomitant]
     Active Substance: DICLOFENAC SODIUM
     Indication: Product used for unknown indication
  84. ENBREL [Concomitant]
     Active Substance: ETANERCEPT
     Indication: Rheumatoid arthritis
     Dosage: 1 EVERY 1 WEEKS
     Route: 058
  85. ENBREL [Concomitant]
     Active Substance: ETANERCEPT
     Indication: Psoriatic arthropathy
     Route: 058
  86. ENBREL [Concomitant]
     Active Substance: ETANERCEPT
     Dosage: 1 EVERY 1 WEEKS
     Route: 058
  87. ENBREL [Concomitant]
     Active Substance: ETANERCEPT
     Dosage: 1 EVERY 1 WEEKS
     Route: 048
  88. ENBREL [Concomitant]
     Active Substance: ETANERCEPT
     Dosage: 1 EVERY 1 WEEKS
     Route: 058
  89. ENBREL [Concomitant]
     Active Substance: ETANERCEPT
     Dosage: 1 EVERY 1 WEEKS
     Route: 058
  90. ENBREL [Concomitant]
     Active Substance: ETANERCEPT
     Dosage: 1 EVERY 1 WEEKS
     Route: 058
  91. ENBREL [Concomitant]
     Active Substance: ETANERCEPT
     Dosage: 1 EVERY 1 WEEKS
     Route: 058
  92. ENBREL [Concomitant]
     Active Substance: ETANERCEPT
     Dosage: 1 EVERY 1 WEEKS
     Route: 058
  93. ENBREL [Concomitant]
     Active Substance: ETANERCEPT
     Dosage: 1 EVERY 1 WEEKS
     Route: 058
  94. ENBREL [Concomitant]
     Active Substance: ETANERCEPT
     Dosage: 1 EVERY 1 WEEKS
     Route: 058
  95. ENBREL [Concomitant]
     Active Substance: ETANERCEPT
     Dosage: 1 EVERY 1 WEEKS
  96. ENBREL [Concomitant]
     Active Substance: ETANERCEPT
     Dosage: 1 EVERY 1 WEEKS
     Route: 058
  97. ENBREL [Concomitant]
     Active Substance: ETANERCEPT
     Dosage: 1 EVERY 1 WEEKS
     Route: 058
  98. ERELZI [Concomitant]
     Active Substance: ETANERCEPT-SZZS
     Indication: Rheumatoid arthritis
  99. ERELZI [Concomitant]
     Active Substance: ETANERCEPT-SZZS
  100. ERELZI [Concomitant]
     Active Substance: ETANERCEPT-SZZS
     Route: 058
  101. ERELZI [Concomitant]
     Active Substance: ETANERCEPT-SZZS
     Route: 058
  102. ERELZI [Concomitant]
     Active Substance: ETANERCEPT-SZZS
     Route: 058
  103. ERELZI [Concomitant]
     Active Substance: ETANERCEPT-SZZS
     Route: 058
  104. ERELZI [Concomitant]
     Active Substance: ETANERCEPT-SZZS
     Route: 058
  105. ERELZI [Concomitant]
     Active Substance: ETANERCEPT-SZZS
  106. ERELZI [Concomitant]
     Active Substance: ETANERCEPT-SZZS
     Route: 058
  107. ERELZI [Concomitant]
     Active Substance: ETANERCEPT-SZZS
     Route: 058
  108. FLUMETHASONE [Concomitant]
     Active Substance: FLUMETHASONE
     Indication: Product used for unknown indication
  109. FLUMETHASONE PIVALATE\GENTAMICIN SULFATE [Concomitant]
     Active Substance: FLUMETHASONE PIVALATE\GENTAMICIN SULFATE
     Indication: Product used for unknown indication
  110. FOLIC ACID [Concomitant]
     Active Substance: FOLIC ACID
     Indication: Rheumatoid arthritis
  111. FOLIC ACID [Concomitant]
     Active Substance: FOLIC ACID
     Route: 058
  112. FOLIC ACID [Concomitant]
     Active Substance: FOLIC ACID
     Route: 048
  113. FOLIC ACID [Concomitant]
     Active Substance: FOLIC ACID
     Route: 048
  114. FOLIC ACID [Concomitant]
     Active Substance: FOLIC ACID
  115. FOLIC ACID [Concomitant]
     Active Substance: FOLIC ACID
  116. FOLIC ACID [Concomitant]
     Active Substance: FOLIC ACID
     Route: 048
  117. FOLIC ACID [Concomitant]
     Active Substance: FOLIC ACID
  118. FOLIC ACID [Concomitant]
     Active Substance: FOLIC ACID
     Route: 048
  119. FOLIC ACID [Concomitant]
     Active Substance: FOLIC ACID
     Route: 058
  120. FOLIC ACID [Concomitant]
     Active Substance: FOLIC ACID
     Route: 058
  121. FOLIC ACID [Concomitant]
     Active Substance: FOLIC ACID
  122. FOLIC ACID [Concomitant]
     Active Substance: FOLIC ACID
  123. FOLIC ACID [Concomitant]
     Active Substance: FOLIC ACID
     Route: 048
  124. FOLIC ACID [Concomitant]
     Active Substance: FOLIC ACID
     Route: 048
  125. FOLIC ACID [Concomitant]
     Active Substance: FOLIC ACID
     Route: 048
  126. FOLIC ACID [Concomitant]
     Active Substance: FOLIC ACID
  127. FOLIC ACID [Concomitant]
     Active Substance: FOLIC ACID
  128. FOLIC ACID [Concomitant]
     Active Substance: FOLIC ACID
  129. FOLIC ACID [Concomitant]
     Active Substance: FOLIC ACID
     Route: 048
  130. FOLIC ACID [Concomitant]
     Active Substance: FOLIC ACID
  131. FOLIC ACID [Concomitant]
     Active Substance: FOLIC ACID
  132. FOLIC ACID [Concomitant]
     Active Substance: FOLIC ACID
  133. FOLIC ACID [Concomitant]
     Active Substance: FOLIC ACID
  134. FOLIC ACID [Concomitant]
     Active Substance: FOLIC ACID
     Route: 048
  135. FOLIC ACID [Concomitant]
     Active Substance: FOLIC ACID
  136. FOLIC ACID [Concomitant]
     Active Substance: FOLIC ACID
     Route: 058
  137. FOSAMAX [Concomitant]
     Active Substance: ALENDRONATE SODIUM
     Indication: Rheumatoid arthritis
     Route: 048
  138. FOSAMAX [Concomitant]
     Active Substance: ALENDRONATE SODIUM
     Route: 058
  139. FOSAMAX [Concomitant]
     Active Substance: ALENDRONATE SODIUM
  140. GOLIMUMAB [Concomitant]
     Active Substance: GOLIMUMAB
     Indication: Rheumatoid arthritis
     Route: 058
  141. GOLIMUMAB [Concomitant]
     Active Substance: GOLIMUMAB
  142. HUMIRA [Concomitant]
     Active Substance: ADALIMUMAB
     Indication: Rheumatoid arthritis
     Route: 058
  143. HUMIRA [Concomitant]
     Active Substance: ADALIMUMAB
  144. HUMIRA [Concomitant]
     Active Substance: ADALIMUMAB
  145. HUMIRA [Concomitant]
     Active Substance: ADALIMUMAB
     Route: 058
  146. HUMIRA [Concomitant]
     Active Substance: ADALIMUMAB
     Route: 058
  147. HUMIRA [Concomitant]
     Active Substance: ADALIMUMAB
     Route: 058
  148. HUMIRA [Concomitant]
     Active Substance: ADALIMUMAB
  149. HYDROXYCHLOROQUINE [Concomitant]
     Active Substance: HYDROXYCHLOROQUINE
     Indication: Rheumatoid arthritis
     Dosage: 1 EVERY 1 DAYS
     Route: 048
  150. HYDROXYCHLOROQUINE [Concomitant]
     Active Substance: HYDROXYCHLOROQUINE
     Dosage: 1 EVERY 1 DAYS
     Route: 048
  151. HYDROXYCHLOROQUINE [Concomitant]
     Active Substance: HYDROXYCHLOROQUINE
     Dosage: 1 EVERY 1 DAYS
     Route: 058
  152. HYDROXYCHLOROQUINE [Concomitant]
     Active Substance: HYDROXYCHLOROQUINE
     Dosage: 1 EVERY 1 DAYS
     Route: 048
  153. HYDROXYCHLOROQUINE SULFATE [Concomitant]
     Active Substance: HYDROXYCHLOROQUINE SULFATE
     Indication: Rheumatoid arthritis
     Dosage: 1 EVERY 1 DAYS
     Route: 048
  154. HYDROXYCHLOROQUINE SULFATE [Concomitant]
     Active Substance: HYDROXYCHLOROQUINE SULFATE
     Dosage: 1 EVERY 1 DAYS
     Route: 058
  155. HYDROXYCHLOROQUINE SULFATE [Concomitant]
     Active Substance: HYDROXYCHLOROQUINE SULFATE
     Dosage: 1 EVERY 1 DAYS
     Route: 048
  156. HYDROXYCHLOROQUINE SULFATE [Concomitant]
     Active Substance: HYDROXYCHLOROQUINE SULFATE
  157. HYDROXYCHLOROQUINE SULFATE [Concomitant]
     Active Substance: HYDROXYCHLOROQUINE SULFATE
  158. HYDROXYCHLOROQUINE SULFATE [Concomitant]
     Active Substance: HYDROXYCHLOROQUINE SULFATE
  159. HYDROXYCHLOROQUINE SULFATE [Concomitant]
     Active Substance: HYDROXYCHLOROQUINE SULFATE
  160. HYDROXYCHLOROQUINE SULFATE [Concomitant]
     Active Substance: HYDROXYCHLOROQUINE SULFATE
  161. HYDROXYCHLOROQUINE SULFATE [Concomitant]
     Active Substance: HYDROXYCHLOROQUINE SULFATE
  162. HYDROXYCHLOROQUINE SULFATE [Concomitant]
     Active Substance: HYDROXYCHLOROQUINE SULFATE
  163. HYDROXYCHLOROQUINE SULFATE [Concomitant]
     Active Substance: HYDROXYCHLOROQUINE SULFATE
  164. HYDROXYCHLOROQUINE SULFATE [Concomitant]
     Active Substance: HYDROXYCHLOROQUINE SULFATE
  165. HYDROXYCHLOROQUINE SULFATE [Concomitant]
     Active Substance: HYDROXYCHLOROQUINE SULFATE
  166. IBUPROFEN [Concomitant]
     Active Substance: IBUPROFEN
     Indication: Product used for unknown indication
  167. INFLIXIMAB [Concomitant]
     Active Substance: INFLIXIMAB
     Indication: Rheumatoid arthritis
     Route: 042
  168. KEVZARA [Concomitant]
     Active Substance: SARILUMAB
     Indication: Rheumatoid arthritis
  169. LEFLUNOMIDE [Concomitant]
     Active Substance: LEFLUNOMIDE
     Indication: Rheumatoid arthritis
     Dosage: 1 EVERY 1 DAYS
  170. LEFLUNOMIDE [Concomitant]
     Active Substance: LEFLUNOMIDE
     Dosage: 1 EVERY 1 DAYS
  171. LEFLUNOMIDE [Concomitant]
     Active Substance: LEFLUNOMIDE
     Route: 048
  172. LEFLUNOMIDE [Concomitant]
     Active Substance: LEFLUNOMIDE
  173. LISINOPRIL [Concomitant]
     Active Substance: LISINOPRIL
     Indication: Product used for unknown indication
  174. MAGNESIUM CITRATE [Concomitant]
     Active Substance: MAGNESIUM CITRATE
     Indication: Product used for unknown indication
  175. METHOTREXATE [Concomitant]
     Active Substance: METHOTREXATE
     Indication: Rheumatoid arthritis
     Dosage: 2 EVERY 1 DAYS
     Route: 048
  176. METHOTREXATE [Concomitant]
     Active Substance: METHOTREXATE
     Indication: Psoriatic arthropathy
     Dosage: 1 EVERY 1CWEEKS
     Route: 048
  177. METHOTREXATE [Concomitant]
     Active Substance: METHOTREXATE
     Dosage: 2 EVERY 1 DAYS
     Route: 048
  178. METHOTREXATE [Concomitant]
     Active Substance: METHOTREXATE
     Route: 058
  179. METHOTREXATE [Concomitant]
     Active Substance: METHOTREXATE
     Dosage: 1 EVERY 1WEEKS
     Route: 013
  180. METHOTREXATE [Concomitant]
     Active Substance: METHOTREXATE
     Dosage: 1 EVERY 1 DAYS
     Route: 048
  181. METHOTREXATE [Concomitant]
     Active Substance: METHOTREXATE
     Dosage: 1 EVERY 1 DAYS
     Route: 058
  182. METHOTREXATE [Concomitant]
     Active Substance: METHOTREXATE
     Dosage: 1 EVERY 1 DAYS
  183. METHOTREXATE [Concomitant]
     Active Substance: METHOTREXATE
     Dosage: 1 EVERY 1 DAYS
     Route: 048
  184. METHOTREXATE [Concomitant]
     Active Substance: METHOTREXATE
     Dosage: 1 EVERY 1 DAYS
     Route: 048
  185. METHOTREXATE [Concomitant]
     Active Substance: METHOTREXATE
     Dosage: 1 EVERY 1 DAYS
     Route: 048
  186. METHOTREXATE [Concomitant]
     Active Substance: METHOTREXATE
     Dosage: 1 EVERY 1 DAYS
     Route: 048
  187. METHOTREXATE [Concomitant]
     Active Substance: METHOTREXATE
     Dosage: 1 EVERY 1 DAYS
     Route: 048
  188. METHOTREXATE [Concomitant]
     Active Substance: METHOTREXATE
     Dosage: 1 EVERY 1 DAYS
  189. METHOTREXATE [Concomitant]
     Active Substance: METHOTREXATE
     Dosage: 1 EVERY 1 DAYS
  190. METHOTREXATE [Concomitant]
     Active Substance: METHOTREXATE
     Dosage: 1 EVERY 1 DAYS
     Route: 048
  191. METHOTREXATE [Concomitant]
     Active Substance: METHOTREXATE
     Dosage: 1 EVERY 1 DAYS
     Route: 058
  192. METHOTREXATE [Concomitant]
     Active Substance: METHOTREXATE
     Dosage: 1 EVERY 1 DAYS
     Route: 048
  193. METHOTREXATE [Concomitant]
     Active Substance: METHOTREXATE
     Dosage: 1 EVERY 1 DAYS
     Route: 048
  194. METHOTREXATE [Concomitant]
     Active Substance: METHOTREXATE
     Dosage: 1 EVERY 1 DAYS
     Route: 048
  195. METHOTREXATE [Concomitant]
     Active Substance: METHOTREXATE
     Dosage: 1 EVERY 1 DAYS
     Route: 048
  196. METHOTREXATE [Concomitant]
     Active Substance: METHOTREXATE
     Dosage: 1 EVERY 1 DAYS
     Route: 048
  197. METHOTREXATE [Concomitant]
     Active Substance: METHOTREXATE
     Dosage: 1 EVERY 1 DAYS
     Route: 058
  198. METHOTREXATE [Concomitant]
     Active Substance: METHOTREXATE
     Dosage: 4015.0 DAYS
     Route: 048
  199. METHOTREXATE [Concomitant]
     Active Substance: METHOTREXATE
     Dosage: 2 EVERY 1 DAY
     Route: 048
  200. METHOTREXATE [Concomitant]
     Active Substance: METHOTREXATE
     Dosage: 1 EVERY 1 DAYS
     Route: 058
  201. METHOTREXATE [Concomitant]
     Active Substance: METHOTREXATE
     Dosage: 1 EVERY 1 DAYS
     Route: 048
  202. METHOTREXATE [Concomitant]
     Active Substance: METHOTREXATE
     Dosage: 1 EVERY 1 DAYS
     Route: 048
  203. METHOTREXATE [Concomitant]
     Active Substance: METHOTREXATE
     Dosage: 2 EVERY 1 DAY
     Route: 048
  204. METHOTREXATE [Concomitant]
     Active Substance: METHOTREXATE
     Dosage: 2 EVERY 1 DAY
     Route: 048
  205. METHOTREXATE [Concomitant]
     Active Substance: METHOTREXATE
     Dosage: 4015.0 DAYS
     Route: 048
  206. METHOTREXATE [Concomitant]
     Active Substance: METHOTREXATE
     Dosage: 2 EVERY 1 DAY
     Route: 048
  207. METHOTREXATE [Concomitant]
     Active Substance: METHOTREXATE
     Dosage: 2 EVERY 1 DAY
     Route: 048
  208. METHOTREXATE [Concomitant]
     Active Substance: METHOTREXATE
     Dosage: 2 EVERY 1 DAY
  209. METHOTREXATE [Concomitant]
     Active Substance: METHOTREXATE
     Dosage: 2 EVERY 1 DAY
  210. METHOTREXATE [Concomitant]
     Active Substance: METHOTREXATE
     Dosage: 2 EVERY 1 DAY
  211. METHOTREXATE [Concomitant]
     Active Substance: METHOTREXATE
     Dosage: 2 EVERY 1 DAY
     Route: 048
  212. METHOTREXATE [Concomitant]
     Active Substance: METHOTREXATE
     Dosage: 2 EVERY 1 DAY
  213. METHOTREXATE [Concomitant]
     Active Substance: METHOTREXATE
     Dosage: 2 EVERY 1 DAY
  214. METHOTREXATE [Concomitant]
     Active Substance: METHOTREXATE
     Dosage: 2 EVERY 1 DAY
  215. METHOTREXATE [Concomitant]
     Active Substance: METHOTREXATE
     Dosage: 2 EVERY 1 DAY
  216. METHOTREXATE [Concomitant]
     Active Substance: METHOTREXATE
     Dosage: 2 EVERY 1 DAY
     Route: 048
  217. METHOTREXATE [Concomitant]
     Active Substance: METHOTREXATE
     Dosage: 2 EVERY 1 DAY
     Route: 048
  218. METHOTREXATE [Concomitant]
     Active Substance: METHOTREXATE
     Dosage: 11.0 DAY
     Route: 048
  219. METHOTREXATE [Concomitant]
     Active Substance: METHOTREXATE
  220. METHOTREXATE [Concomitant]
     Active Substance: METHOTREXATE
     Dosage: 4015.0 DAYS
     Route: 048
  221. METHOTREXATE [Concomitant]
     Active Substance: METHOTREXATE
     Dosage: 4015.0 DAYS
  222. METHOTREXATE [Concomitant]
     Active Substance: METHOTREXATE
     Dosage: 11.0 YEARS
  223. METHOTREXATE [Concomitant]
     Active Substance: METHOTREXATE
     Dosage: 4015.0 DAYS
     Route: 048
  224. METHOTREXATE [Concomitant]
     Active Substance: METHOTREXATE
     Dosage: 4015.0 DAYS
  225. METHOTREXATE [Concomitant]
     Active Substance: METHOTREXATE
  226. METHOTREXATE [Concomitant]
     Active Substance: METHOTREXATE
     Route: 048
  227. METHOTREXATE [Concomitant]
     Active Substance: METHOTREXATE
     Route: 048
  228. METHOTREXATE [Concomitant]
     Active Substance: METHOTREXATE
     Route: 048
  229. METHOTREXATE [Concomitant]
     Active Substance: METHOTREXATE
     Route: 048
  230. METHOTREXATE [Concomitant]
     Active Substance: METHOTREXATE
  231. METHOTREXATE [Concomitant]
     Active Substance: METHOTREXATE
     Route: 048
  232. METHOTREXATE [Concomitant]
     Active Substance: METHOTREXATE
  233. METHOTREXATE [Concomitant]
     Active Substance: METHOTREXATE
     Route: 048
  234. METHOTREXATE [Concomitant]
     Active Substance: METHOTREXATE
  235. METHOTREXATE [Concomitant]
     Active Substance: METHOTREXATE
     Route: 048
  236. METHOTREXATE [Concomitant]
     Active Substance: METHOTREXATE
     Route: 048
  237. METHOTREXATE [Concomitant]
     Active Substance: METHOTREXATE
     Route: 048
  238. METHOTREXATE [Concomitant]
     Active Substance: METHOTREXATE
  239. METHOTREXATE [Concomitant]
     Active Substance: METHOTREXATE
     Route: 048
  240. METHOTREXATE [Concomitant]
     Active Substance: METHOTREXATE
     Route: 048
  241. METHOTREXATE [Concomitant]
     Active Substance: METHOTREXATE
     Route: 035
  242. METHOTREXATE [Concomitant]
     Active Substance: METHOTREXATE
     Route: 048
  243. METHOTREXATE [Concomitant]
     Active Substance: METHOTREXATE
     Route: 058
  244. METHOTREXATE [Concomitant]
     Active Substance: METHOTREXATE
     Route: 058
  245. METHOTREXATE [Concomitant]
     Active Substance: METHOTREXATE
  246. METHOTREXATE [Concomitant]
     Active Substance: METHOTREXATE
  247. METHOTREXATE [Concomitant]
     Active Substance: METHOTREXATE
     Route: 058
  248. METHOTREXATE [Concomitant]
     Active Substance: METHOTREXATE
     Route: 058
  249. NAPROXEN SODIUM [Concomitant]
     Active Substance: NAPROXEN SODIUM
     Indication: Product used for unknown indication
  250. OXYCODONE [Concomitant]
     Active Substance: OXYCODONE
     Indication: Product used for unknown indication
  251. OXYCODONE TEREPHTHALATE [Concomitant]
     Active Substance: OXYCODONE TEREPHTHALATE
     Indication: Product used for unknown indication
  252. PANTOPRAZOLE [Concomitant]
     Active Substance: PANTOPRAZOLE
     Indication: Product used for unknown indication
  253. PHTHALYLSULFATHIAZOLE [Concomitant]
     Active Substance: PHTHALYLSULFATHIAZOLE
     Indication: Rheumatoid arthritis
     Dosage: 2 EVERY 1 DAYS, THERAPY DURATION: 365
     Route: 048
  254. PHTHALYLSULFATHIAZOLE [Concomitant]
     Active Substance: PHTHALYLSULFATHIAZOLE
     Route: 042
  255. PHTHALYLSULFATHIAZOLE [Concomitant]
     Active Substance: PHTHALYLSULFATHIAZOLE
     Dosage: 2 EVERY 1 DAYS, THERAPY DURATION: 365
     Route: 048
  256. PHTHALYLSULFATHIAZOLE [Concomitant]
     Active Substance: PHTHALYLSULFATHIAZOLE
     Route: 058
  257. PHTHALYLSULFATHIAZOLE [Concomitant]
     Active Substance: PHTHALYLSULFATHIAZOLE
     Dosage: 2 EVERY 1 DAYS, THERAPY DURATION: 365
  258. PHTHALYLSULFATHIAZOLE [Concomitant]
     Active Substance: PHTHALYLSULFATHIAZOLE
     Dosage: 2 EVERY 1 DAYS, THERAPY DURATION: 365
  259. PHTHALYLSULFATHIAZOLE [Concomitant]
     Active Substance: PHTHALYLSULFATHIAZOLE
  260. PHTHALYLSULFATHIAZOLE [Concomitant]
     Active Substance: PHTHALYLSULFATHIAZOLE
     Dosage: 2 EVERY 1 DAYS, THERAPY DURATION: 365
  261. PHTHALYLSULFATHIAZOLE [Concomitant]
     Active Substance: PHTHALYLSULFATHIAZOLE
     Dosage: 2 EVERY 1 DAYS, THERAPY DURATION: 365
  262. PHTHALYLSULFATHIAZOLE [Concomitant]
     Active Substance: PHTHALYLSULFATHIAZOLE
     Dosage: 2 EVERY 1 DAYS, THERAPY DURATION: 365
  263. PHTHALYLSULFATHIAZOLE [Concomitant]
     Active Substance: PHTHALYLSULFATHIAZOLE
     Dosage: 2 EVERY 1 DAYS, THERAPY DURATION: 365
  264. PHTHALYLSULFATHIAZOLE [Concomitant]
     Active Substance: PHTHALYLSULFATHIAZOLE
     Dosage: 2 EVERY 1 DAYS, THERAPY DURATION: 365
  265. PHTHALYLSULFATHIAZOLE [Concomitant]
     Active Substance: PHTHALYLSULFATHIAZOLE
     Dosage: 2 EVERY 1 DAYS, THERAPY DURATION: 365
  266. PHTHALYLSULFATHIAZOLE [Concomitant]
     Active Substance: PHTHALYLSULFATHIAZOLE
     Dosage: 2 EVERY 1 DAYS, THERAPY DURATION: 365
  267. PHTHALYLSULFATHIAZOLE [Concomitant]
     Active Substance: PHTHALYLSULFATHIAZOLE
     Dosage: 2 EVERY 1 DAYS, THERAPY DURATION: 365
  268. PHTHALYLSULFATHIAZOLE [Concomitant]
     Active Substance: PHTHALYLSULFATHIAZOLE
     Dosage: 2 EVERY 1 DAYS, THERAPY DURATION: 365
  269. PHTHALYLSULFATHIAZOLE [Concomitant]
     Active Substance: PHTHALYLSULFATHIAZOLE
  270. PLAQUENIL [Concomitant]
     Active Substance: HYDROXYCHLOROQUINE SULFATE
     Indication: Rheumatoid arthritis
     Dosage: 1 EVERY 1 DAYS
     Route: 048
  271. PLAQUENIL [Concomitant]
     Active Substance: HYDROXYCHLOROQUINE SULFATE
     Dosage: 1 EVERY 1 DAYS
     Route: 048
  272. PREDNISONE [Concomitant]
     Active Substance: PREDNISONE
     Indication: Rheumatoid arthritis
     Route: 048
  273. PREDNISONE [Concomitant]
     Active Substance: PREDNISONE
     Route: 048
  274. PREDNISONE [Concomitant]
     Active Substance: PREDNISONE
  275. PREDNISONE [Concomitant]
     Active Substance: PREDNISONE
  276. PSEUDOEPHEDRINE HYDROCHLORIDE [Concomitant]
     Active Substance: PSEUDOEPHEDRINE HYDROCHLORIDE
     Indication: Rheumatoid arthritis
  277. PSEUDOEPHEDRINE HYDROCHLORIDE [Concomitant]
     Active Substance: PSEUDOEPHEDRINE HYDROCHLORIDE
  278. PSEUDOEPHEDRINE HYDROCHLORIDE [Concomitant]
     Active Substance: PSEUDOEPHEDRINE HYDROCHLORIDE
  279. PSEUDOEPHEDRINE HYDROCHLORIDE [Concomitant]
     Active Substance: PSEUDOEPHEDRINE HYDROCHLORIDE
  280. PSEUDOEPHEDRINE HYDROCHLORIDE [Concomitant]
     Active Substance: PSEUDOEPHEDRINE HYDROCHLORIDE
  281. PSEUDOEPHEDRINE HYDROCHLORIDE [Concomitant]
     Active Substance: PSEUDOEPHEDRINE HYDROCHLORIDE
  282. PSEUDOEPHEDRINE HYDROCHLORIDE [Concomitant]
     Active Substance: PSEUDOEPHEDRINE HYDROCHLORIDE
  283. QUETIAPINE FUMARATE [Concomitant]
     Active Substance: QUETIAPINE FUMARATE
     Indication: Product used for unknown indication
  284. CETIRIZINE HYDROCHLORIDE [Concomitant]
     Active Substance: CETIRIZINE HYDROCHLORIDE
     Indication: Rheumatoid arthritis
  285. CETIRIZINE HYDROCHLORIDE [Concomitant]
     Active Substance: CETIRIZINE HYDROCHLORIDE
     Route: 042
  286. CETIRIZINE HYDROCHLORIDE [Concomitant]
     Active Substance: CETIRIZINE HYDROCHLORIDE
  287. REMICADE [Concomitant]
     Active Substance: INFLIXIMAB
     Indication: Rheumatoid arthritis
  288. REMICADE [Concomitant]
     Active Substance: INFLIXIMAB
     Route: 042
  289. RISEDRONATE SODIUM [Concomitant]
     Active Substance: RISEDRONATE SODIUM
     Indication: Product used for unknown indication
  290. RITUXIMAB [Concomitant]
     Active Substance: RITUXIMAB
     Indication: Rheumatoid arthritis
     Route: 042
  291. RITUXIMAB [Concomitant]
     Active Substance: RITUXIMAB
     Indication: Psoriatic arthropathy
     Route: 043
  292. RITUXIMAB [Concomitant]
     Active Substance: RITUXIMAB
     Route: 058
  293. RITUXIMAB [Concomitant]
     Active Substance: RITUXIMAB
     Route: 042
  294. RITUXIMAB [Concomitant]
     Active Substance: RITUXIMAB
     Route: 042
  295. RITUXIMAB [Concomitant]
     Active Substance: RITUXIMAB
     Route: 042
  296. RITUXIMAB [Concomitant]
     Active Substance: RITUXIMAB
     Route: 058
  297. RITUXIMAB [Concomitant]
     Active Substance: RITUXIMAB
  298. RITUXIMAB [Concomitant]
     Active Substance: RITUXIMAB
     Route: 043
  299. RITUXIMAB [Concomitant]
     Active Substance: RITUXIMAB
     Route: 041
  300. RITUXIMAB [Concomitant]
     Active Substance: RITUXIMAB
  301. RITUXIMAB [Concomitant]
     Active Substance: RITUXIMAB
     Route: 016
  302. RITUXIMAB [Concomitant]
     Active Substance: RITUXIMAB
     Route: 016
  303. RITUXIMAB [Concomitant]
     Active Substance: RITUXIMAB
     Route: 016
  304. RITUXIMAB [Concomitant]
     Active Substance: RITUXIMAB
     Route: 042
  305. RITUXIMAB [Concomitant]
     Active Substance: RITUXIMAB
     Route: 058
  306. RITUXIMAB [Concomitant]
     Active Substance: RITUXIMAB
  307. RITUXIMAB [Concomitant]
     Active Substance: RITUXIMAB
     Route: 042
  308. RITUXIMAB [Concomitant]
     Active Substance: RITUXIMAB
     Route: 042
  309. RITUXIMAB [Concomitant]
     Active Substance: RITUXIMAB
  310. RITUXIMAB [Concomitant]
     Active Substance: RITUXIMAB
     Route: 058
  311. SIMPONI [Concomitant]
     Active Substance: GOLIMUMAB
     Indication: Rheumatoid arthritis
     Route: 058
  312. STELARA [Concomitant]
     Active Substance: USTEKINUMAB
     Indication: Product used for unknown indication
     Route: 058
  313. SULFASALAZINE [Concomitant]
     Active Substance: SULFASALAZINE
     Indication: Rheumatoid arthritis
     Route: 048
  314. SULFASALAZINE [Concomitant]
     Active Substance: SULFASALAZINE
     Route: 048
  315. SULFASALAZINE [Concomitant]
     Active Substance: SULFASALAZINE
     Dosage: 2 EVERY 1 DAYS
     Route: 048
  316. SULFASALAZINE [Concomitant]
     Active Substance: SULFASALAZINE
     Route: 048
  317. SULFASALAZINE [Concomitant]
     Active Substance: SULFASALAZINE
  318. SULFASALAZINE [Concomitant]
     Active Substance: SULFASALAZINE
     Dosage: 1 EVERY 1 DAYS
     Route: 058
  319. SULFASALAZINE [Concomitant]
     Active Substance: SULFASALAZINE
     Dosage: 2 EVERY 1 DAYS
     Route: 048
  320. SULFASALAZINE [Concomitant]
     Active Substance: SULFASALAZINE
     Dosage: 2 EVERY 1 DAYS
     Route: 048
  321. SULFASALAZINE [Concomitant]
     Active Substance: SULFASALAZINE
     Dosage: 2 EVERY 1 DAYS
     Route: 048
  322. SULFASALAZINE [Concomitant]
     Active Substance: SULFASALAZINE
     Dosage: 2 EVERY 1 DAYS
     Route: 048
  323. SULFASALAZINE [Concomitant]
     Active Substance: SULFASALAZINE
     Dosage: 2 EVERY 1 DAYS
     Route: 048
  324. SULFASALAZINE [Concomitant]
     Active Substance: SULFASALAZINE
     Dosage: 2 EVERY 1 DAYS
     Route: 048
  325. SULFASALAZINE [Concomitant]
     Active Substance: SULFASALAZINE
     Dosage: 2 EVERY 1 DAYS
     Route: 058
  326. SULFASALAZINE [Concomitant]
     Active Substance: SULFASALAZINE
     Dosage: 2 EVERY 1 DAYS
     Route: 058
  327. SULFASALAZINE [Concomitant]
     Active Substance: SULFASALAZINE
     Dosage: 2 EVERY 1 DAYS
     Route: 048
  328. TOCILIZUMAB [Concomitant]
     Active Substance: TOCILIZUMAB
     Indication: Rheumatoid arthritis
     Route: 058
  329. TOCILIZUMAB [Concomitant]
     Active Substance: TOCILIZUMAB
     Route: 042
  330. TOFACITINIB CITRATE [Concomitant]
     Active Substance: TOFACITINIB CITRATE
     Indication: Product used for unknown indication
     Dosage: 2 EVERY 1 DAYS
  331. TOFACITINIB CITRATE [Concomitant]
     Active Substance: TOFACITINIB CITRATE
     Dosage: 2 EVERY 1 DAYS
  332. TOFACITINIB CITRATE [Concomitant]
     Active Substance: TOFACITINIB CITRATE
     Dosage: 2 EVERY 1 DAYS
  333. VITAMIN C [Concomitant]
     Active Substance: ASCORBIC ACID
     Indication: Product used for unknown indication
  334. XELJANZ [Concomitant]
     Active Substance: TOFACITINIB CITRATE
     Indication: Rheumatoid arthritis
     Dosage: 2 EVERY 1 DAYS
  335. ACETAMINOPHEN\OXYCODONE HYDROCHLORIDE [Concomitant]
     Active Substance: ACETAMINOPHEN\OXYCODONE HYDROCHLORIDE
     Indication: Product used for unknown indication
  336. ALENDRONATE SODIUM [Concomitant]
     Active Substance: ALENDRONATE SODIUM
     Indication: Rheumatoid arthritis
     Route: 016
  337. ALENDRONATE SODIUM [Concomitant]
     Active Substance: ALENDRONATE SODIUM
  338. ALENDRONATE SODIUM [Concomitant]
     Active Substance: ALENDRONATE SODIUM
     Route: 048
  339. ALENDRONATE SODIUM [Concomitant]
     Active Substance: ALENDRONATE SODIUM
  340. ALENDRONATE SODIUM [Concomitant]
     Active Substance: ALENDRONATE SODIUM
  341. ALENDRONATE SODIUM [Concomitant]
     Active Substance: ALENDRONATE SODIUM
     Route: 048
  342. ALENDRONATE SODIUM [Concomitant]
     Active Substance: ALENDRONATE SODIUM
  343. CALCIUM CHLORIDE [Concomitant]
     Active Substance: CALCIUM CHLORIDE
     Indication: Product used for unknown indication
  344. CALCIUM LACTATE [Concomitant]
     Active Substance: CALCIUM LACTATE
     Indication: Product used for unknown indication
  345. CANDESARTAN [Concomitant]
     Active Substance: CANDESARTAN
     Indication: Migraine
  346. CANDESARTAN [Concomitant]
     Active Substance: CANDESARTAN
     Route: 048
  347. CETRIMIDE [Concomitant]
     Active Substance: CETRIMIDE
     Indication: Rheumatoid arthritis
  348. CIMZIA [Concomitant]
     Active Substance: CERTOLIZUMAB PEGOL
     Indication: Rheumatoid arthritis
  349. CIMZIA [Concomitant]
     Active Substance: CERTOLIZUMAB PEGOL
     Indication: Psoriasis
  350. CIMZIA [Concomitant]
     Active Substance: CERTOLIZUMAB PEGOL
     Route: 058
  351. CIMZIA [Concomitant]
     Active Substance: CERTOLIZUMAB PEGOL
     Route: 058
  352. CORTISONE (HYDROCORTISONE) [Concomitant]
     Active Substance: HYDROCORTISONE
     Indication: Rheumatoid arthritis
     Route: 058
  353. CORTISONE (HYDROCORTISONE) [Concomitant]
     Active Substance: HYDROCORTISONE
  354. CYANOCOBALAMIN [Concomitant]
     Active Substance: CYANOCOBALAMIN
     Indication: Product used for unknown indication
  355. DOMPERIDONE MALEATE [Concomitant]
     Active Substance: DOMPERIDONE MALEATE
     Indication: Product used for unknown indication
  356. DOMPERIDONE MALEATE [Concomitant]
     Active Substance: DOMPERIDONE MALEATE
  357. DOMPERIDONE\PANTOPRAZOLE SODIUM [Concomitant]
     Active Substance: DOMPERIDONE\PANTOPRAZOLE SODIUM
     Indication: Product used for unknown indication
  358. ELBASVIR [Concomitant]
     Active Substance: ELBASVIR
     Indication: Product used for unknown indication
  359. ERENUMAB-AOOE [Concomitant]
     Active Substance: ERENUMAB-AOOE
     Indication: Migraine
  360. ERENUMAB-AOOE [Concomitant]
     Active Substance: ERENUMAB-AOOE
  361. HYRIMOZ [Concomitant]
     Active Substance: ADALIMUMAB-ADAZ
     Indication: Rheumatoid arthritis
     Route: 058
  362. HYRIMOZ [Concomitant]
     Active Substance: ADALIMUMAB-ADAZ
     Route: 058
  363. HYRIMOZ [Concomitant]
     Active Substance: ADALIMUMAB-ADAZ
     Route: 058
  364. HYRIMOZ [Concomitant]
     Active Substance: ADALIMUMAB-ADAZ
     Route: 048
  365. HYRIMOZ [Concomitant]
     Active Substance: ADALIMUMAB-ADAZ
  366. HYRIMOZ [Concomitant]
     Active Substance: ADALIMUMAB-ADAZ
  367. HYRIMOZ [Concomitant]
     Active Substance: ADALIMUMAB-ADAZ
     Route: 058
  368. ISOPROPYL ALCOHOL [Concomitant]
     Active Substance: ISOPROPYL ALCOHOL
     Indication: Product used for unknown indication
  369. ISOPROPYL ALCOHOL [Concomitant]
     Active Substance: ISOPROPYL ALCOHOL
  370. KEVZARA [Concomitant]
     Active Substance: SARILUMAB
     Indication: Rheumatoid arthritis
  371. KEVZARA [Concomitant]
     Active Substance: SARILUMAB
  372. KEVZARA [Concomitant]
     Active Substance: SARILUMAB
  373. LANSOPRAZOLE [Concomitant]
     Active Substance: LANSOPRAZOLE
     Indication: Product used for unknown indication
  374. LEVOTHYROXINE SODIUM [Concomitant]
     Active Substance: LEVOTHYROXINE SODIUM
     Indication: Product used for unknown indication
  375. LISINOPRIL [Concomitant]
     Active Substance: LISINOPRIL
     Indication: Product used for unknown indication
  376. PIROXICAM [Concomitant]
     Active Substance: PIROXICAM
     Indication: Rheumatoid arthritis
     Route: 048
  377. PIROXICAM [Concomitant]
     Active Substance: PIROXICAM
     Route: 048
  378. CETIRIZINE HYDROCHLORIDE [Concomitant]
     Active Substance: CETIRIZINE HYDROCHLORIDE
     Indication: Product used for unknown indication
  379. REMICADE [Concomitant]
     Active Substance: INFLIXIMAB
     Indication: Rheumatoid arthritis
  380. REMICADE [Concomitant]
     Active Substance: INFLIXIMAB
  381. REMICADE [Concomitant]
     Active Substance: INFLIXIMAB
     Route: 042
  382. ATOMOXETINE HYDROCHLORIDE [Concomitant]
     Active Substance: ATOMOXETINE HYDROCHLORIDE
     Indication: Migraine
  383. DICLOFENAC SODIUM [Concomitant]
     Active Substance: DICLOFENAC SODIUM
     Indication: Product used for unknown indication
     Route: 058
  384. DICLOFENAC SODIUM [Concomitant]
     Active Substance: DICLOFENAC SODIUM
  385. DICLOFENAC SODIUM [Concomitant]
     Active Substance: DICLOFENAC SODIUM
     Route: 058
  386. DICLOFENAC SODIUM [Concomitant]
     Active Substance: DICLOFENAC SODIUM
  387. DICLOFENAC SODIUM [Concomitant]
     Active Substance: DICLOFENAC SODIUM
  388. DICLOFENAC SODIUM [Concomitant]
     Active Substance: DICLOFENAC SODIUM
  389. DICLOFENAC SODIUM [Concomitant]
     Active Substance: DICLOFENAC SODIUM
     Route: 047
  390. DICLOFENAC SODIUM [Concomitant]
     Active Substance: DICLOFENAC SODIUM
  391. DICLOFENAC SODIUM [Concomitant]
     Active Substance: DICLOFENAC SODIUM
     Route: 058
  392. DICLOFENAC SODIUM [Concomitant]
     Active Substance: DICLOFENAC SODIUM
  393. DILTIAZEM HYDROCHLORIDE [Concomitant]
     Active Substance: DILTIAZEM HYDROCHLORIDE
     Indication: Product used for unknown indication
  394. DILTIAZEM HYDROCHLORIDE [Concomitant]
     Active Substance: DILTIAZEM HYDROCHLORIDE
     Route: 002
  395. HYDROCORTISONE [Concomitant]
     Active Substance: HYDROCORTISONE
     Indication: Rheumatoid arthritis
  396. HYDROCORTISONE [Concomitant]
     Active Substance: HYDROCORTISONE
  397. HYDROCORTISONE [Concomitant]
     Active Substance: HYDROCORTISONE
  398. HYDROCORTISONE [Concomitant]
     Active Substance: HYDROCORTISONE
  399. LEFLUNOMIDE [Concomitant]
     Active Substance: LEFLUNOMIDE
     Indication: Rheumatoid arthritis
     Route: 048
  400. LEFLUNOMIDE [Concomitant]
     Active Substance: LEFLUNOMIDE
  401. LEFLUNOMIDE [Concomitant]
     Active Substance: LEFLUNOMIDE
  402. LEFLUNOMIDE [Concomitant]
     Active Substance: LEFLUNOMIDE
  403. LEFLUNOMIDE [Concomitant]
     Active Substance: LEFLUNOMIDE
  404. LEFLUNOMIDE [Concomitant]
     Active Substance: LEFLUNOMIDE
  405. LEFLUNOMIDE [Concomitant]
     Active Substance: LEFLUNOMIDE
     Route: 048
  406. LEFLUNOMIDE [Concomitant]
     Active Substance: LEFLUNOMIDE
     Route: 048
  407. MYCOPHENOLATE MOFETIL [Concomitant]
     Active Substance: MYCOPHENOLATE MOFETIL
     Indication: Product used for unknown indication
  408. TOPIRAMATE [Concomitant]
     Active Substance: TOPIRAMATE
     Indication: Migraine
  409. TOPIRAMATE [Concomitant]
     Active Substance: TOPIRAMATE
  410. TOPIRAMATE [Concomitant]
     Active Substance: TOPIRAMATE
  411. TOPIRAMATE [Concomitant]
     Active Substance: TOPIRAMATE
  412. TOPIRAMATE [Concomitant]
     Active Substance: TOPIRAMATE
     Route: 048
  413. TOPIRAMATE [Concomitant]
     Active Substance: TOPIRAMATE
  414. TOPIRAMATE [Concomitant]
     Active Substance: TOPIRAMATE
  415. SIMPONI [Concomitant]
     Active Substance: GOLIMUMAB
     Indication: Product used for unknown indication
  416. SIMPONI [Concomitant]
     Active Substance: GOLIMUMAB
     Route: 002
  417. STELARA [ESOMEPRAZOLE MAGNESIUM] [Concomitant]
     Indication: Product used for unknown indication
  418. STELARA [ESOMEPRAZOLE MAGNESIUM] [Concomitant]
     Route: 002
  419. TRAMADOL HYDROCHLORIDE [Concomitant]
     Active Substance: TRAMADOL HYDROCHLORIDE
     Indication: Product used for unknown indication
  420. TRAZODONE [Concomitant]
     Active Substance: TRAZODONE HYDROCHLORIDE
     Indication: Product used for unknown indication
  421. VITAMIN D3 [Concomitant]
     Active Substance: CHOLECALCIFEROL
     Indication: Product used for unknown indication
  422. DICLOFENAC DIETHYLAMINE [Concomitant]
     Active Substance: DICLOFENAC DIETHYLAMINE
     Indication: Product used for unknown indication
  423. DICLOFENAC DIETHYLAMINE [Concomitant]
     Active Substance: DICLOFENAC DIETHYLAMINE
  424. DICLOFENAC DIETHYLAMINE [Concomitant]
     Active Substance: DICLOFENAC DIETHYLAMINE
  425. DICLOFENAC DIETHYLAMINE [Concomitant]
     Active Substance: DICLOFENAC DIETHYLAMINE
  426. DICLOFENAC DIETHYLAMINE [Concomitant]
     Active Substance: DICLOFENAC DIETHYLAMINE
  427. DICLOFENAC DIETHYLAMINE [Concomitant]
     Active Substance: DICLOFENAC DIETHYLAMINE

REACTIONS (41)
  - Abdominal pain upper [Unknown]
  - Dry mouth [Unknown]
  - Facet joint syndrome [Unknown]
  - Folliculitis [Unknown]
  - Hepatic enzyme increased [Unknown]
  - Hypercholesterolaemia [Unknown]
  - Hypoaesthesia [Unknown]
  - Impaired healing [Unknown]
  - Infection [Unknown]
  - Inflammation [Unknown]
  - Irritable bowel syndrome [Unknown]
  - Joint swelling [Unknown]
  - Lip dry [Unknown]
  - Lower respiratory tract infection [Unknown]
  - Lung disorder [Unknown]
  - Muscle injury [Unknown]
  - Muscle spasms [Unknown]
  - Musculoskeletal pain [Unknown]
  - Oedema [Unknown]
  - Adverse event [Unknown]
  - Hospitalisation [Unknown]
  - Accidental overdose [Unknown]
  - Arthritis [Unknown]
  - Aspiration [Unknown]
  - Dyspepsia [Unknown]
  - Arthropathy [Unknown]
  - Hypocholesterolaemia [Unknown]
  - Incorrect route of product administration [Unknown]
  - Lower limb fracture [Unknown]
  - Lupus vulgaris [Unknown]
  - Nail disorder [Unknown]
  - Nausea [Unknown]
  - Prescribed overdose [Unknown]
  - Prescribed underdose [Unknown]
  - Pulmonary fibrosis [Unknown]
  - Rash pruritic [Unknown]
  - Road traffic accident [Unknown]
  - Therapeutic response decreased [Unknown]
  - Therapy non-responder [Unknown]
  - Ulcer haemorrhage [Unknown]
  - Liver disorder [Unknown]
